FAERS Safety Report 5883758-4 (Version None)
Quarter: 2008Q3

REPORT INFORMATION
  Report Type: 
  Country: None (occurrence: None)
  Receive Date: 20080911
  Receipt Date: 20080902
  Transmission Date: 20090109
  Serious: Yes (Death)
  Sender: FDA-Public Use
  Company Number: WAES 0809CAN00006

PATIENT
  Age: 45 Year
  Sex: Male

DRUGS (1)
  1. HYZAAR [Suspect]
     Indication: HYPERTENSION
     Dosage: 50-12.5 MG/DAILY
     Route: 048
     Dates: start: 20080627, end: 20080801

REACTIONS (1)
  - COMPLETED SUICIDE [None]
